FAERS Safety Report 17556728 (Version 1)
Quarter: 2020Q1

REPORT INFORMATION
  Report Type: Spontaneous
  Country: US (occurrence: US)
  Receive Date: 20200310
  Receipt Date: 20200310
  Transmission Date: 20200409
  Serious: Yes (Death, Hospitalization)
  Sender: FDA-Public Use
  Company Number: None

PATIENT
  Age: 66 Year
  Sex: Male
  Weight: 94.9 kg

DRUGS (3)
  1. LENALIDOMIDE (CC-5013) [Suspect]
     Active Substance: LENALIDOMIDE
     Dates: end: 20200304
  2. VELCADE [Suspect]
     Active Substance: BORTEZOMIB
     Dates: end: 20200225
  3. DEXAMETHASONE. [Suspect]
     Active Substance: DEXAMETHASONE
     Dates: end: 20200304

REACTIONS (2)
  - Haemorrhagic stroke [None]
  - Nervous system disorder [None]

NARRATIVE: CASE EVENT DATE: 20200303
